FAERS Safety Report 16867647 (Version 1)
Quarter: 2019Q3

REPORT INFORMATION
  Report Type: Spontaneous
  Country: PL (occurrence: PL)
  Receive Date: 20190930
  Receipt Date: 20190930
  Transmission Date: 20191005
  Serious: Yes (Death)
  Sender: FDA-Public Use
  Company Number: PL-PFIZER INC-2019404942

PATIENT
  Age: 66 Year

DRUGS (5)
  1. FUROSEMIDE. [Suspect]
     Active Substance: FUROSEMIDE
     Dosage: 40 MG, PER DAY
  2. ACETYLSALICYLIC ACID [Suspect]
     Active Substance: ASPIRIN
     Dosage: 75 MG, PER DAY
  3. ENOXAPARINE [Suspect]
     Active Substance: ENOXAPARIN
     Dosage: 80 MG, PER DAY
  4. SPIRONOLACTONE. [Suspect]
     Active Substance: SPIRONOLACTONE
     Dosage: 25 MG, PER DAY
  5. PANTOPRAZOLE [Suspect]
     Active Substance: PANTOPRAZOLE
     Dosage: 20 MG, PER DAY

REACTIONS (5)
  - Drug ineffective [Fatal]
  - Fallot^s pentalogy [Fatal]
  - Atrioventricular block [Fatal]
  - Arrhythmia [Fatal]
  - Conduction disorder [Fatal]
